FAERS Safety Report 11987848 (Version 1)
Quarter: 2016Q1

REPORT INFORMATION
  Report Type: Spontaneous
  Country: US (occurrence: US)
  Receive Date: 20160202
  Receipt Date: 20160202
  Transmission Date: 20160526
  Serious: No
  Sender: FDA-Public Use
  Company Number: PHEH2016US002367

PATIENT
  Age: 3 Year
  Sex: Female
  Weight: 11.34 kg

DRUGS (3)
  1. ZOFRAN [Suspect]
     Active Substance: ONDANSETRON HYDROCHLORIDE
     Indication: NAUSEA
     Route: 065
  2. CHILDRENS ADVIL [Suspect]
     Active Substance: IBUPROFEN
     Dosage: 5 ML, UNK
     Route: 065
  3. CHILDRENS ADVIL [Suspect]
     Active Substance: IBUPROFEN
     Indication: PYREXIA
     Dosage: 3.75 ML, UNK
     Route: 065

REACTIONS (2)
  - Pyrexia [Unknown]
  - Vomiting [Unknown]
